FAERS Safety Report 15805846 (Version 1)
Quarter: 2019Q1

REPORT INFORMATION
  Report Type: Spontaneous
  Country: US (occurrence: US)
  Receive Date: 20190110
  Receipt Date: 20190110
  Transmission Date: 20190417
  Serious: Yes (Hospitalization, Other)
  Sender: FDA-Public Use
  Company Number: US-OC PHARMA-000035

PATIENT
  Age: 39 Year
  Sex: Female

DRUGS (1)
  1. LEVONORGESTREL. [Suspect]
     Active Substance: LEVONORGESTREL
     Dosage: THE LEVONORGESTREL RELEASE RATE IS 14 MCG/24 HRS AFTER 24 DAYS AND 5MCG/24 HRS AFTER 3 YEARS.
     Route: 015
     Dates: start: 20170916

REACTIONS (2)
  - Cholelithiasis [Recovered/Resolved]
  - Cholecystitis acute [Recovered/Resolved]
